FAERS Safety Report 18377716 (Version 1)
Quarter: 2020Q4

REPORT INFORMATION
  Report Type: Spontaneous
  Country: US (occurrence: US)
  Receive Date: 20201013
  Receipt Date: 20201013
  Transmission Date: 20210114
  Serious: No
  Sender: FDA-Public Use
  Company Number: US-ALLERGAN-2025508US

PATIENT
  Age: 39 Year
  Sex: Female

DRUGS (4)
  1. CYCLOBENZAPRINE. [Concomitant]
     Active Substance: CYCLOBENZAPRINE
  2. TRAMADOL                           /00599202/ [Concomitant]
     Active Substance: TRAMADOL
     Dosage: 50 MG, PRN,  UP TO 4 TIMES DAILY
     Route: 048
  3. UBRELVY [Suspect]
     Active Substance: UBROGEPANT
     Indication: MIGRAINE
     Dosage: 100 MG, PRN
     Route: 048
     Dates: start: 20200626, end: 20200701
  4. NUCYNTA [Concomitant]
     Active Substance: TAPENTADOL HYDROCHLORIDE
     Dosage: 150 MG, BID

REACTIONS (3)
  - Chest pain [Recovered/Resolved]
  - Blood pressure increased [Unknown]
  - Chest discomfort [Recovered/Resolved]
